FAERS Safety Report 25292202 (Version 1)
Quarter: 2025Q2

REPORT INFORMATION
  Report Type: Spontaneous
  Country: US (occurrence: US)
  Receive Date: 20250510
  Receipt Date: 20250510
  Transmission Date: 20250716
  Serious: No
  Sender: SANOFI AVENTIS
  Company Number: US-SA-2025SA121866

PATIENT
  Age: 2 Year
  Sex: Male

DRUGS (1)
  1. DUPIXENT [Suspect]
     Active Substance: DUPILUMAB
     Indication: Eczema
     Dosage: 200 MG, Q4W
     Route: 058
     Dates: start: 20240910

REACTIONS (5)
  - Eczema [Unknown]
  - Erythema [Unknown]
  - Dry skin [Unknown]
  - Pruritus [Unknown]
  - Periorbital swelling [Unknown]

NARRATIVE: CASE EVENT DATE: 20250401
